FAERS Safety Report 12937748 (Version 2)
Quarter: 2016Q4

REPORT INFORMATION
  Report Type: Spontaneous
  Country: AU (occurrence: AU)
  Receive Date: 20161114
  Receipt Date: 20161206
  Transmission Date: 20170207
  Serious: Yes (Hospitalization, Other)
  Sender: FDA-Public Use
  Company Number: AU-ALEXION PHARMACEUTICALS INC.-A201608872

PATIENT
  Sex: Male

DRUGS (3)
  1. SOLIRIS [Suspect]
     Active Substance: ECULIZUMAB
     Dosage: 600 MG, QW, FOR FOUR WEEKS
     Route: 042
     Dates: start: 20161110
  2. SOLIRIS [Suspect]
     Active Substance: ECULIZUMAB
     Indication: PAROXYSMAL NOCTURNAL HAEMOGLOBINURIA
     Dosage: 600 MG, QW, FOR 4 WEEKS
     Route: 042
     Dates: start: 20150603
  3. SOLIRIS [Suspect]
     Active Substance: ECULIZUMAB
     Dosage: 600 MG, Q2W
     Route: 042
     Dates: start: 20150701, end: 20160504

REACTIONS (3)
  - Myocardial infarction [Unknown]
  - Incorrect dose administered [Unknown]
  - Anaemia [Unknown]

NARRATIVE: CASE EVENT DATE: 20150701
